FAERS Safety Report 18754302 (Version 5)
Quarter: 2021Q2

REPORT INFORMATION
  Report Type: Spontaneous
  Country: ES (occurrence: ES)
  Receive Date: 20210119
  Receipt Date: 20210427
  Transmission Date: 20210717
  Serious: Yes (Life-Threatening, Hospitalization, Other)
  Sender: FDA-Public Use
  Company Number: ES-AUROBINDO-AUR-APL-2021-002188

PATIENT
  Age: 74 Year
  Sex: Male
  Weight: 76 kg

DRUGS (15)
  1. AVELUMAB [Concomitant]
     Active Substance: AVELUMAB
     Indication: OESOPHAGEAL CARCINOMA
     Dosage: 720 MILLIGRAM, CYCLICAL, ONCE IN EVERY TWO WEEKS
     Route: 042
     Dates: start: 20200722
  2. AVELUMAB [Concomitant]
     Active Substance: AVELUMAB
     Indication: GASTRIC CANCER
     Dosage: 720 MILLIGRAM, CYCLICAL, ONCE IN EVERY TWO WEEKS
     Route: 042
     Dates: start: 20201229
  3. FLUOROURACIL. [Suspect]
     Active Substance: FLUOROURACIL
     Dosage: 4680 MILLIGRAM, CYCLICAL, ONCE IN EVERY TWO WEEKS
     Route: 042
     Dates: start: 20201230
  4. VESOMNI [Concomitant]
     Active Substance: SOLIFENACIN\TAMSULOSIN
     Indication: BENIGN PROSTATIC HYPERPLASIA
     Dosage: 6 MILLIGRAM
     Route: 065
     Dates: start: 20010101
  5. DOCETAXEL. [Suspect]
     Active Substance: DOCETAXEL
     Indication: GASTRIC CANCER
     Dosage: 90 MILLIGRAM, CYCLICAL, ONCE IN EVERY TWO WEEKS
     Route: 042
     Dates: start: 20201229
  6. SITAGLIPTIN [Concomitant]
     Active Substance: SITAGLIPTIN
     Indication: DIABETES MELLITUS
     Dosage: 50 MILLIGRAM
     Route: 065
     Dates: start: 20040101
  7. FLUOROURACIL. [Suspect]
     Active Substance: FLUOROURACIL
     Indication: GASTRIC CANCER
     Dosage: 4680 MILLIGRAM, CYCLICAL (ONCE IN EVERY TWO WEEKS)
     Route: 042
     Dates: start: 20201229
  8. METFORMIN [Concomitant]
     Active Substance: METFORMIN HYDROCHLORIDE
     Indication: DIABETES MELLITUS
     Dosage: 1000 MILLIGRAM
     Route: 065
     Dates: start: 20040101
  9. CALCIUM FOLINATE [Suspect]
     Active Substance: LEUCOVORIN CALCIUM
     Indication: OESOPHAGEAL CARCINOMA
     Dosage: 720 MILLIGRAM, CYCLICAL, ONCE IN EVERY TWO WEEKS
     Route: 042
     Dates: start: 20200722
  10. CALCIUM FOLINATE [Suspect]
     Active Substance: LEUCOVORIN CALCIUM
     Indication: GASTRIC CANCER
     Dosage: 720 MILLIGRAM, CYCLICAL, ONCE IN EVERY TWO WEEKS
     Route: 042
     Dates: start: 20201229
  11. IRBESARTAN. [Concomitant]
     Active Substance: IRBESARTAN
     Indication: HYPERTENSION
     Dosage: 75 MILLIGRAM
     Route: 065
     Dates: start: 20200701
  12. FLUOROURACIL. [Suspect]
     Active Substance: FLUOROURACIL
     Indication: OESOPHAGEAL CARCINOMA
     Dosage: 4680 MILLIGRAM, CYCLICAL, ONCE IN EVERY TWO WEEKS
     Route: 042
     Dates: start: 20200722
  13. OXALIPLATIN. [Suspect]
     Active Substance: OXALIPLATIN
     Indication: OESOPHAGEAL CARCINOMA
     Dosage: 150 MILLIGRAM, CYCLICAL, ONCE IN EVERY TWO WEEKS
     Route: 042
     Dates: start: 20200722
  14. DOCETAXEL. [Suspect]
     Active Substance: DOCETAXEL
     Indication: OESOPHAGEAL CARCINOMA
     Dosage: 90 MILLIGRAM, CYCLICAL, ONCE IN EVERY TWO WEEKS
     Route: 042
     Dates: start: 20200722
  15. OXALIPLATIN. [Suspect]
     Active Substance: OXALIPLATIN
     Indication: GASTRIC CANCER
     Dosage: 150 MILLIGRAM, CYCLICAL, ONCE IN EVERY TWO WEEKS
     Route: 042
     Dates: start: 20201229

REACTIONS (1)
  - Septic shock [Recovered/Resolved]

NARRATIVE: CASE EVENT DATE: 20201230
